FAERS Safety Report 25522566 (Version 1)
Quarter: 2025Q3

REPORT INFORMATION
  Report Type: Report from Study
  Country: CN (occurrence: None)
  Receive Date: 20250707
  Receipt Date: 20250707
  Transmission Date: 20251020
  Serious: Yes (Death)
  Sender: ENCUBE ETHICALS
  Company Number: CN-Encube-002007

PATIENT

DRUGS (3)
  1. FLUOROURACIL [Suspect]
     Active Substance: FLUOROURACIL
     Indication: Nasopharyngeal cancer
  2. PACLITAXEL [Suspect]
     Active Substance: PACLITAXEL
     Indication: Nasopharyngeal cancer
  3. CISPLATIN [Suspect]
     Active Substance: CISPLATIN
     Indication: Nasopharyngeal cancer

REACTIONS (2)
  - Toxicity to various agents [Fatal]
  - Off label use [Unknown]
